FAERS Safety Report 20198917 (Version 1)
Quarter: 2021Q4

REPORT INFORMATION
  Report Type: Spontaneous
  Country: US (occurrence: US)
  Receive Date: 20211217
  Receipt Date: 20211217
  Transmission Date: 20220303
  Serious: Yes (Other)
  Sender: FDA-Public Use
  Company Number: US-CELGENE-USA-20211204063

PATIENT
  Sex: Male

DRUGS (1)
  1. THALIDOMIDE [Suspect]
     Active Substance: THALIDOMIDE
     Indication: Myelofibrosis
     Dosage: 50 MILLIGRAM
     Route: 048
     Dates: start: 20211123

REACTIONS (4)
  - Haemoglobin decreased [Unknown]
  - Constipation [Unknown]
  - Asthenia [Unknown]
  - Dizziness [Unknown]

NARRATIVE: CASE EVENT DATE: 20210101
